FAERS Safety Report 17393612 (Version 1)
Quarter: 2020Q1

REPORT INFORMATION
  Report Type: Spontaneous
  Country: DE (occurrence: DE)
  Receive Date: 20200208
  Receipt Date: 20200208
  Transmission Date: 20200409
  Serious: Yes (Hospitalization)
  Sender: FDA-Public Use
  Company Number: NVSC2020DE028898

PATIENT
  Age: 55 Year
  Sex: Male
  Weight: 82 kg

DRUGS (1)
  1. AZITHROMYCIN 1 A PHARMA 500 MG FILMTABLETTA [Suspect]
     Active Substance: AZITHROMYCIN
     Indication: PHARYNGITIS
     Dosage: 500 MG, QD (1X1)
     Route: 048
     Dates: start: 20191012, end: 20191020

REACTIONS (5)
  - Hyperhidrosis [Recovering/Resolving]
  - Swelling [Recovering/Resolving]
  - Respiratory disorder [Recovering/Resolving]
  - Skin irritation [Recovering/Resolving]
  - Urticaria [Recovering/Resolving]

NARRATIVE: CASE EVENT DATE: 20191018
